FAERS Safety Report 23517333 (Version 1)
Quarter: 2024Q1

REPORT INFORMATION
  Report Type: 
  Country: None (occurrence: None)
  Receive Date: 20240213
  Receipt Date: 20240213
  Transmission Date: 20240410
  Serious: No
  Sender: FDA-Public Use
  Company Number: DE-ROCHE-3505836

PATIENT

DRUGS (3)
  1. RITUXIMAB [Suspect]
     Active Substance: RITUXIMAB
     Dosage: 6 CYCLES (Q28D) OF RVE, DATE OF LAST DOSE PRIOR TO SAE ON 21/DEC/2018
     Dates: start: 20180801
  2. VENETOCLAX [Suspect]
     Active Substance: VENETOCLAX
     Dosage: 6 CYCLES (Q28D) OF VENETOCLAX (ALONE). DATE OF LAST DOSE PRIOR TO SAE ON 07/APR/2019
     Dates: start: 20180822
  3. TILIDINE [Concomitant]
     Active Substance: TILIDINE
     Dates: start: 20231211, end: 20231229

REACTIONS (1)
  - Lung neoplasm malignant [None]

NARRATIVE: CASE EVENT DATE: 20231210
